FAERS Safety Report 16794595 (Version 1)
Quarter: 2019Q3

REPORT INFORMATION
  Report Type: Report from Study
  Country: US (occurrence: US)
  Receive Date: 20190911
  Receipt Date: 20190911
  Transmission Date: 20191005
  Serious: Yes (Other)
  Sender: FDA-Public Use
  Company Number: US-EISAI MEDICAL RESEARCH-EC-2017-027626

PATIENT
  Age: 38 Year
  Sex: Male

DRUGS (12)
  1. LENVIMA [Suspect]
     Active Substance: LENVATINIB
     Route: 048
  2. AFINITOR [Concomitant]
     Active Substance: EVEROLIMUS
  3. POTASSIUM [Concomitant]
     Active Substance: POTASSIUM
  4. TRAMADOL. [Concomitant]
     Active Substance: TRAMADOL
  5. ATORVASTATIN CALCIUM. [Concomitant]
     Active Substance: ATORVASTATIN CALCIUM
  6. LISINOPRIL. [Concomitant]
     Active Substance: LISINOPRIL
  7. METOPROLOL. [Concomitant]
     Active Substance: METOPROLOL
  8. ZOMETA [Suspect]
     Active Substance: ZOLEDRONIC ACID
     Indication: PRODUCT USED FOR UNKNOWN INDICATION
     Dosage: DOSE AND FREQUENCY NOT PROVIDED
     Route: 041
  9. OXYBUTYNIN. [Concomitant]
     Active Substance: OXYBUTYNIN CHLORIDE
  10. LENVIMA [Suspect]
     Active Substance: LENVATINIB
     Indication: RENAL CANCER
     Route: 048
     Dates: start: 20170424
  11. CALCIUM+D3 [Concomitant]
  12. SYNTHROID [Concomitant]
     Active Substance: LEVOTHYROXINE SODIUM

REACTIONS (5)
  - Blood pressure increased [Not Recovered/Not Resolved]
  - Dental caries [Unknown]
  - Diarrhoea [Not Recovered/Not Resolved]
  - Osteonecrosis of jaw [Unknown]
  - Urinary tract infection [Recovered/Resolved]

NARRATIVE: CASE EVENT DATE: 201705
